FAERS Safety Report 21937384 (Version 2)
Quarter: 2023Q1

REPORT INFORMATION
  Report Type: Report from Study
  Country: JP (occurrence: JP)
  Receive Date: 20230201
  Receipt Date: 20230228
  Transmission Date: 20230418
  Serious: Yes (Hospitalization)
  Sender: FDA-Public Use
  Company Number: JP-DSJP-DSJ-2023-101398

PATIENT
  Age: 81 Year
  Sex: Male
  Weight: 62.7 kg

DRUGS (7)
  1. EDOXABAN TOSYLATE [Suspect]
     Active Substance: EDOXABAN TOSYLATE
     Indication: Thrombosis prophylaxis
     Dosage: 30 MG, QD
     Route: 048
     Dates: start: 20221129, end: 20230111
  2. LANSOPRAZOLE [Concomitant]
     Active Substance: LANSOPRAZOLE
     Indication: Gastritis prophylaxis
     Dosage: 15 MG, QD, AFTER BREAKFAST
     Route: 048
     Dates: start: 20221029
  3. AMLODIPINE BESYLATE [Concomitant]
     Active Substance: AMLODIPINE BESYLATE
     Indication: Hypertension
     Dosage: 1.25 MG, QD, AFTER BREAKFAST
     Route: 048
     Dates: start: 20221108
  4. ICOSAPENT ETHYL [Concomitant]
     Active Substance: ICOSAPENT ETHYL
     Indication: Antiplatelet therapy
     Dosage: 600 MG, QD, AFTER DINNER
     Route: 048
     Dates: start: 200110, end: 20230111
  5. SODIUM FERROUS CITRATE [Concomitant]
     Active Substance: SODIUM FERROUS CITRATE
     Indication: Anaemia
     Dosage: 400 MG, BID, AFTER BREAKFAST AND DINNER
     Route: 048
     Dates: start: 20221227
  6. BISOPROLOL [Concomitant]
     Active Substance: BISOPROLOL
     Indication: Arrhythmia
     Dosage: 4 MG, QD, MORNING
     Route: 065
     Dates: start: 20221031
  7. ASPIRIN [Concomitant]
     Active Substance: ASPIRIN
     Dosage: UNK
     Route: 065
     Dates: end: 20221226

REACTIONS (1)
  - Colon cancer [Not Recovered/Not Resolved]

NARRATIVE: CASE EVENT DATE: 20230111
